FAERS Safety Report 20605728 (Version 2)
Quarter: 2022Q2

REPORT INFORMATION
  Report Type: Report from Study
  Country: IT (occurrence: IT)
  Receive Date: 20220317
  Receipt Date: 20220520
  Transmission Date: 20220721
  Serious: Yes (Other)
  Sender: FDA-Public Use
  Company Number: None

PATIENT
  Age: 62 Year
  Sex: Female
  Weight: 64 kg

DRUGS (2)
  1. CARBOPLATIN [Suspect]
     Active Substance: CARBOPLATIN
     Indication: Breast cancer metastatic
     Dosage: UNIT DOSE: 435 MG
     Dates: start: 20220126
  2. GEMCITABINE HYDROCHLORIDE [Suspect]
     Active Substance: GEMCITABINE HYDROCHLORIDE
     Indication: Breast cancer metastatic
     Dosage: UNIT DOSE: 1300 MG
     Dates: start: 20220126

REACTIONS (3)
  - Anaemia [Recovering/Resolving]
  - Pericardial effusion [Recovering/Resolving]
  - Asthenia [Recovering/Resolving]

NARRATIVE: CASE EVENT DATE: 20220216
